FAERS Safety Report 18973734 (Version 1)
Quarter: 2021Q1

REPORT INFORMATION
  Report Type: Spontaneous
  Country: US (occurrence: US)
  Receive Date: 20210305
  Receipt Date: 20210305
  Transmission Date: 20210420
  Serious: No
  Sender: FDA-Public Use
  Company Number: None

PATIENT
  Age: 72 Year
  Sex: Male

DRUGS (11)
  1. TRADJENTA 5 MG [Concomitant]
  2. NOURIANZ [Suspect]
     Active Substance: ISTRADEFYLLINE
     Indication: PARKINSON^S DISEASE
     Route: 048
     Dates: start: 20201119, end: 20210305
  3. RYTARVY ER 36.25/145 [Concomitant]
  4. TAMSULOSIN 0.4 MG [Concomitant]
     Active Substance: TAMSULOSIN
  5. NEUPRO 6 MG [Concomitant]
  6. CARBIDOPA AND LEVODOPA [Concomitant]
     Active Substance: CARBIDOPA\LEVODOPA
  7. SELEGILINE 5 MG [Concomitant]
  8. AMANTADINE 100 MG [Concomitant]
     Active Substance: AMANTADINE
  9. FINASTERIDE 1 MG [Concomitant]
     Active Substance: FINASTERIDE
  10. LISINOPRIL 10 MG [Concomitant]
     Active Substance: LISINOPRIL
  11. NEXIUM 10 MG [Concomitant]

REACTIONS (5)
  - Musculoskeletal stiffness [None]
  - Condition aggravated [None]
  - Pain [None]
  - Coordination abnormal [None]
  - Muscle spasms [None]

NARRATIVE: CASE EVENT DATE: 20210201
